FAERS Safety Report 7385208-8 (Version None)
Quarter: 2011Q1

REPORT INFORMATION
  Report Type: 
  Country: None (occurrence: None)
  Receive Date: 20110330
  Receipt Date: 20110118
  Transmission Date: 20110831
  Serious: No
  Sender: FDA-Public Use
  Company Number: US-MYLANLABS-2011S1001376

PATIENT
  Age: 77 Year
  Sex: Female

DRUGS (2)
  1. DIAZEPAM [Concomitant]
  2. NIFEDIPINE [Suspect]
     Indication: ANGINA PECTORIS
     Route: 048
     Dates: start: 20101201, end: 20101201

REACTIONS (2)
  - ANGINA PECTORIS [None]
  - DRUG INEFFECTIVE [None]
